FAERS Safety Report 4802902-0 (Version None)
Quarter: 2005Q4

REPORT INFORMATION
  Report Type: 
  Country: None (occurrence: None)
  Receive Date: 20051017
  Receipt Date: 20051017
  Transmission Date: 20060501
  Serious: Yes (Life-Threatening, Hospitalization)
  Sender: FDA-Public Use
  Company Number: None

PATIENT
  Sex: Male
  Weight: 83.9154 kg

DRUGS (4)
  1. SALINE 0.9% SYREX [Suspect]
     Indication: CENTRAL VENOUS CATHETERISATION
     Dosage: 10ML DAILY IV
     Route: 042
     Dates: start: 20050716, end: 20051009
  2. HEPARIN LOCK-FLUSH [Suspect]
     Indication: CENTRAL VENOUS CATHETERISATION
     Dosage: 5ML DAILY IV
     Route: 042
     Dates: start: 20050716, end: 20051009
  3. ALLEGRA [Concomitant]
  4. DETROL [Concomitant]

REACTIONS (4)
  - CENTRAL LINE INFECTION [None]
  - PHARMACEUTICAL PRODUCT COMPLAINT [None]
  - PSEUDOMONAS INFECTION [None]
  - SHOCK [None]
